FAERS Safety Report 6891151-0 (Version None)
Quarter: 2010Q3

REPORT INFORMATION
  Report Type: 
  Country: None (occurrence: None)
  Receive Date: 20100731
  Receipt Date: 20090611
  Transmission Date: 20110219
  Serious: No
  Sender: FDA-Public Use
  Company Number: US-PFIZER INC-2009236403

PATIENT
  Sex: Male
  Weight: 80.726 kg

DRUGS (5)
  1. LIPITOR [Suspect]
     Indication: BLOOD CHOLESTEROL INCREASED
     Dosage: 20 MG, 1X/DAY
     Route: 048
     Dates: start: 20081001
  2. GEMFIBROZIL [Concomitant]
     Dosage: 600 MG, UNK
     Route: 048
     Dates: start: 20081001
  3. GLIMEPIRIDE [Concomitant]
     Dosage: 4 MG, UNK
     Route: 048
     Dates: start: 20081001
  4. METFORMIN [Concomitant]
     Dosage: 500 MG, UNK
     Route: 048
     Dates: start: 20081001
  5. TRIAMCINOLONE [Concomitant]
     Dosage: 1 %, UNK
     Dates: start: 20090501

REACTIONS (2)
  - DRUG HYPERSENSITIVITY [None]
  - RASH [None]
